FAERS Safety Report 11172048 (Version 8)
Quarter: 2015Q3

REPORT INFORMATION
  Report Type: Spontaneous
  Country: US (occurrence: US)
  Receive Date: 20150608
  Receipt Date: 20150814
  Transmission Date: 20151125
  Serious: Yes (Hospitalization, Other)
  Sender: FDA-Public Use
  Company Number: US-PFIZER INC-2015191049

PATIENT
  Age: 64 Year
  Sex: Female

DRUGS (6)
  1. DEPO-MEDROL [Suspect]
     Active Substance: METHYLPREDNISOLONE ACETATE
     Indication: OSTEOARTHRITIS
     Dosage: 1 ML (40MG/ML 10 ML VIAL), UNK
     Route: 014
  2. SYMBICORT [Concomitant]
     Active Substance: BUDESONIDE\FORMOTEROL FUMARATE DIHYDRATE
     Dosage: 160/4.5 MG- 1 PUFF, DAILY
  3. IBUPROFEN. [Concomitant]
     Active Substance: IBUPROFEN
     Dosage: 800 MG, AS NEEDED (8-12 HOURS)
     Route: 048
  4. IRBESARTAN. [Concomitant]
     Active Substance: IRBESARTAN
     Dosage: 150 MG, DAILY
     Route: 048
  5. BUPIVACAINE [Suspect]
     Active Substance: BUPIVACAINE
     Indication: OSTEOARTHRITIS
     Dosage: 2 ML, (0.25%, 50 ML VIAL), UNK
     Route: 014
  6. LIDOCAINE. [Suspect]
     Active Substance: LIDOCAINE
     Indication: OSTEOARTHRITIS
     Dosage: 2 ML, (50 ML VIAL), UNK
     Route: 014

REACTIONS (7)
  - Product quality issue [Unknown]
  - Arthritis bacterial [Unknown]
  - Bacteraemia [Unknown]
  - Staphylococcal infection [Unknown]
  - Wrong technique in product usage process [Unknown]
  - Sepsis [Unknown]
  - Gait disturbance [Unknown]

NARRATIVE: CASE EVENT DATE: 20150527
